FAERS Safety Report 16963992 (Version 1)
Quarter: 2019Q4

REPORT INFORMATION
  Report Type: Spontaneous
  Country: ES (occurrence: ES)
  Receive Date: 20191026
  Receipt Date: 20191026
  Transmission Date: 20200122
  Serious: Yes (Death, Hospitalization)
  Sender: FDA-Public Use
  Company Number: ES-ACCORD-159209

PATIENT
  Age: 87 Year
  Sex: Male

DRUGS (15)
  1. CITALOPRAM ALMUS [Concomitant]
     Active Substance: CITALOPRAM HYDROBROMIDE
     Dosage: STRENGTH 30 MG, FILM-COATED TABLETS EFG 28 TABLETS
  2. ORFIDAL [Concomitant]
     Active Substance: LORAZEPAM
     Dosage: STRENGTH 1 MG, 50 TABLETS
  3. FUROSEMIDE. [Suspect]
     Active Substance: FUROSEMIDE
     Indication: CARDIAC FAILURE
     Route: 048
     Dates: start: 20180904
  4. SINTROM [Concomitant]
     Active Substance: ACENOCOUMAROL
     Dosage: STRENGTH 4 MG, 20 TABLETS
  5. DUTASTERIDE/TAMSULOSIN HYDROCHLORIDE [Concomitant]
  6. ENALAPRIL [Concomitant]
     Active Substance: ENALAPRIL
     Dosage: STRENGTH 10 MG
  7. ADIRO [Concomitant]
     Active Substance: ASPIRIN
     Dosage: 100 MG GASTRO-RESISTANT TABLETS EFG
  8. DIETHANOLAMINE FUSIDATE/FUSIDATE SODIUM/FUSIDIC ACID [Concomitant]
  9. LEVEMIR [Concomitant]
     Active Substance: INSULIN DETEMIR
     Dosage: 100 U/ML SOLUTION FOR INJECTION IN A PREFILLED PEN
  10. ATORVASTATIN [Concomitant]
     Active Substance: ATORVASTATIN
     Dosage: STRENGTH 20 MG
  11. PARACETAMOL [Concomitant]
     Active Substance: ACETAMINOPHEN
     Dosage: STRENGTH 1,000 MG
  12. SPIRONOLACTONE. [Suspect]
     Active Substance: SPIRONOLACTONE
     Indication: CARDIAC FAILURE
     Dosage: STRENGTH 25 MG
     Route: 065
     Dates: start: 20181227
  13. PANTOPRAZOLE [Concomitant]
     Active Substance: PANTOPRAZOLE
     Dosage: STRENGTH 40 MG
  14. BISOPROLOL [Concomitant]
     Active Substance: BISOPROLOL
     Dosage: STRENGTH 5 MG
  15. METFORMIN [Concomitant]
     Active Substance: METFORMIN HYDROCHLORIDE
     Dosage: STRENGTH 1,000 MG

REACTIONS (1)
  - Acute kidney injury [Not Recovered/Not Resolved]

NARRATIVE: CASE EVENT DATE: 20190104
